FAERS Safety Report 6393433-8 (Version None)
Quarter: 2009Q4

REPORT INFORMATION
  Report Type: 
  Country: None (occurrence: None)
  Receive Date: 20091008
  Receipt Date: 20091001
  Transmission Date: 20100525
  Serious: No
  Sender: FDA-Public Use
  Company Number: US-B.I. PHARMACEUTICALS,INC./RIDGEFIELD-2009-BP-11518BP

PATIENT
  Age: 62 Year
  Sex: Female

DRUGS (1)
  1. MIRAPEX [Suspect]
     Dosage: 0.125 MG

REACTIONS (3)
  - BLOOD PRESSURE INCREASED [None]
  - HEADACHE [None]
  - MALAISE [None]
